FAERS Safety Report 25897736 (Version 1)
Quarter: 2025Q4

REPORT INFORMATION
  Report Type: Spontaneous
  Country: US (occurrence: US)
  Receive Date: 20251008
  Receipt Date: 20251008
  Transmission Date: 20260118
  Serious: No
  Sender: Kenvue
  Company Number: US-KENVUE-20250810627

PATIENT
  Sex: Female

DRUGS (2)
  1. MENS ROGAINE EXTRA STRENGTH [Suspect]
     Active Substance: MINOXIDIL
     Indication: Alopecia
     Dosage: PAST USE, TWO WEEKS OF USE
     Route: 061
  2. MENS ROGAINE EXTRA STRENGTH [Suspect]
     Active Substance: MINOXIDIL
     Dosage: DID NOT USE THE CAP TO MEASURE THE FOAM, TWO WEEKS OF USE
     Route: 061
     Dates: start: 202508

REACTIONS (2)
  - Off label use [Unknown]
  - Product container issue [Unknown]
